FAERS Safety Report 12467263 (Version 1)
Quarter: 2016Q2

REPORT INFORMATION
  Report Type: Spontaneous
  Country: US (occurrence: None)
  Receive Date: 20160614
  Receipt Date: 20160614
  Transmission Date: 20160815
  Serious: Yes (Other)
  Sender: FDA-Public Use
  Company Number: None

PATIENT
  Age: 44 Year
  Sex: Female

DRUGS (1)
  1. ZECUITY [Suspect]
     Active Substance: SUMATRIPTAN SUCCINATE
     Indication: MIGRAINE
     Dosage: 1 PATCH(ES)    APPLIED AS MEDICATED PATCH TO SKIN

REACTIONS (3)
  - Application site pain [None]
  - Application site erythema [None]
  - Application site discolouration [None]

NARRATIVE: CASE EVENT DATE: 20151202
